FAERS Safety Report 6850958 (Version 2)
Quarter: 2024Q4

REPORT INFORMATION
  Report Type: Spontaneous
  Country: DE (occurrence: DE)
  Receive Date: 20081215
  Receipt Date: 20241004
  Transmission Date: 20250114
  Serious: Yes (Congenital Anomaly, Other)
  Sender: SANOFI AVENTIS
  Company Number: DE-AVENTIS-200813192DE

PATIENT
  Sex: Female
  Weight: 1.4 kg

DRUGS (1)
  1. ARAVA [Suspect]
     Active Substance: LEFLUNOMIDE
     Indication: Juvenile idiopathic arthritis
     Dosage: UNK
     Route: 064

REACTIONS (9)
  - Patent ductus arteriosus [Recovered/Resolved]
  - Foetal exposure timing unspecified [Recovered/Resolved]
  - Atrial septal defect [Recovering/Resolving]
  - Ventricular septal defect [Recovering/Resolving]
  - Enterocolitis haemorrhagic [Unknown]
  - Pneumothorax [Unknown]
  - Infantile apnoea [Unknown]
  - Ileus paralytic [Unknown]
  - General physical health deterioration [Unknown]
